FAERS Safety Report 8296097-1 (Version None)
Quarter: 2012Q2

REPORT INFORMATION
  Report Type: 
  Country: None (occurrence: None)
  Receive Date: 20120418
  Receipt Date: 20120411
  Transmission Date: 20120825
  Serious: Yes (Other)
  Sender: FDA-Public Use
  Company Number: US-GLAXOSMITHKLINE-A0968623A

PATIENT
  Age: 59 Year
  Sex: Female

DRUGS (7)
  1. AVELOX [Concomitant]
  2. ADVAIR DISKUS 100/50 [Suspect]
     Indication: PRODUCT USED FOR UNKNOWN INDICATION
     Dosage: 1PUFF TWICE PER DAY
     Route: 055
     Dates: start: 20100801
  3. AMBIEN [Concomitant]
  4. ALBUTEROL [Concomitant]
  5. PREVACID [Concomitant]
  6. LEVAQUIN [Concomitant]
  7. ENALAPRIL MALEATE [Concomitant]

REACTIONS (3)
  - CHOKING SENSATION [None]
  - PRODUCT QUALITY ISSUE [None]
  - CHOKING [None]
